FAERS Safety Report 7125948-9 (Version None)
Quarter: 2010Q4

REPORT INFORMATION
  Report Type: 
  Country: None (occurrence: None)
  Receive Date: 20101129
  Receipt Date: 20101118
  Transmission Date: 20110411
  Serious: Yes (Other)
  Sender: FDA-Public Use
  Company Number: US-JNJFOC-20101107180

PATIENT
  Sex: Male
  Weight: 75.3 kg

DRUGS (2)
  1. FENTANYL-100 [Suspect]
     Indication: PAIN
     Dosage: NDC# 0781-7114-55
     Route: 062
  2. SLEEP MEDICATION NOS [Concomitant]
     Indication: SLEEP DISORDER
     Route: 065

REACTIONS (6)
  - CONFUSIONAL STATE [None]
  - CONVULSION [None]
  - DRUG DOSE OMISSION [None]
  - GENERAL PHYSICAL CONDITION ABNORMAL [None]
  - HYPERHIDROSIS [None]
  - TREMOR [None]
